FAERS Safety Report 11053493 (Version 1)
Quarter: 2015Q2

REPORT INFORMATION
  Report Type: Spontaneous
  Country: FR (occurrence: FR)
  Receive Date: 20150421
  Receipt Date: 20150421
  Transmission Date: 20150821
  Serious: Yes (Other)
  Sender: FDA-Public Use
  Company Number: FR-ELI_LILLY_AND_COMPANY-FR201504003202

PATIENT
  Age: 66 Year
  Sex: Female

DRUGS (2)
  1. GEMZAR [Suspect]
     Active Substance: GEMCITABINE HYDROCHLORIDE
     Indication: SQUAMOUS CELL CARCINOMA OF LUNG
     Dosage: 625 MG/M2, CYCLICAL
     Route: 042
     Dates: end: 20141113
  2. PARACETAMOL [Concomitant]
     Active Substance: ACETAMINOPHEN
     Dosage: 1 G, TID

REACTIONS (6)
  - Dehydration [Unknown]
  - Acute kidney injury [Recovering/Resolving]
  - Haemolytic anaemia [Unknown]
  - Aplastic anaemia [Unknown]
  - Hypertension [Unknown]
  - Platelet count increased [Unknown]

NARRATIVE: CASE EVENT DATE: 20141113
